FAERS Safety Report 7352308-8 (Version None)
Quarter: 2011Q1

REPORT INFORMATION
  Report Type: 
  Country: None (occurrence: None)
  Receive Date: 20110315
  Receipt Date: 20100323
  Transmission Date: 20110831
  Serious: Yes (Hospitalization)
  Sender: FDA-Public Use
  Company Number: US-BAYER-200939100NA

PATIENT
  Sex: Female
  Weight: 46.364 kg

DRUGS (8)
  1. YAZ [Suspect]
     Indication: CONTRACEPTION
     Dates: start: 20081027, end: 20090708
  2. MOTRIN [Concomitant]
     Dosage: 600 MG, TID
     Dates: start: 20080410
  3. PENICILLIN [Concomitant]
  4. ESTRACE [Concomitant]
     Dosage: 1 MG, UNK
  5. AMITIZA [Concomitant]
  6. HYDROCODONE [Concomitant]
  7. DEPO-PROVERA [Concomitant]
     Indication: CONTRACEPTION
     Dosage: EVERY THREE MONTHS
     Dates: start: 20080703, end: 20081001
  8. CELEXA [Concomitant]
     Dosage: 20 MG (DAILY DOSE), QD, ORAL
     Route: 048

REACTIONS (5)
  - HYPOAESTHESIA [None]
  - PULMONARY EMBOLISM [None]
  - CHEST DISCOMFORT [None]
  - DYSPNOEA [None]
  - MUSCULAR WEAKNESS [None]
